FAERS Safety Report 5720744-9 (Version None)
Quarter: 2008Q2

REPORT INFORMATION
  Report Type: 
  Country: None (occurrence: None)
  Receive Date: 20080424
  Receipt Date: 20080418
  Transmission Date: 20081010
  Serious: Yes (Other)
  Sender: FDA-Public Use
  Company Number: S08-USA-01516-01

PATIENT

DRUGS (1)
  1. LEXAPRO [Suspect]

REACTIONS (1)
  - CONVULSION [None]
